FAERS Safety Report 8892650 (Version 1)
Quarter: 2012Q4

REPORT INFORMATION
  Report Type: 
  Country: US (occurrence: US)
  Receive Date: 20121107
  Receipt Date: 20121107
  Transmission Date: 20130627
  Serious: No
  Sender: FDA-Public Use
  Company Number: US-AMGEN-USASP2011057311

PATIENT
  Age: 60 Year
  Sex: Female

DRUGS (1)
  1. ENBREL [Suspect]
     Indication: PSORIASIS
     Dosage: 50 mg, 2 times/wk
     Dates: start: 20111006, end: 20111024

REACTIONS (7)
  - Upper-airway cough syndrome [Recovered/Resolved]
  - Oropharyngeal pain [Recovered/Resolved]
  - Sinus headache [Recovered/Resolved]
  - Injection site swelling [Unknown]
  - Injection site erythema [Unknown]
  - Injection site pustule [Unknown]
  - Rash erythematous [Recovered/Resolved]
